FAERS Safety Report 6738034-4 (Version None)
Quarter: 2010Q2

REPORT INFORMATION
  Report Type: 
  Country: None (occurrence: None)
  Receive Date: 20100519
  Receipt Date: 20100504
  Transmission Date: 20101027
  Serious: Yes (Hospitalization, Other)
  Sender: FDA-Public Use
  Company Number: 2010SCPR000642

PATIENT
  Age: 39 Year
  Sex: Female
  Weight: 76.7 kg

DRUGS (7)
  1. FLUOXETINE [Suspect]
     Indication: MESOTHERAPY
     Dosage: 10 MG, BID, ORAL
     Route: 048
  2. AMINOPHYLLIN [Suspect]
     Indication: MESOTHERAPY
     Dosage: ONE INJECTION ONCE A DAY, SUBCUTANEOUS
     Route: 058
  3. EPINEPHRINE [Suspect]
     Indication: MESOTHERAPY
     Dosage: ONE INJECTION ONCE A DAY, SUBCUTANEOUS
     Route: 058
  4. LIDOCAINE [Suspect]
     Indication: MESOTHERAPY
     Dosage: ONE INJECTION ONCE A DAY, SUBCUTANEOUS
     Route: 058
  5. EPHEDRINE HYDROCHLORIDE (EPHEDRINE HYDROCHLORIDE) UNKNOWN [Suspect]
     Indication: OBESITY
     Dosage: 10 MG, BID, ORAL
     Route: 048
  6. CAFFEINE (CAFFEINE) UNKNOWN [Suspect]
     Indication: OBESITY
     Dosage: 50 MG, BID, ORAL
     Route: 048
  7. TEA, GREEN (CAMELLIA SINENSIS) POWDER [Suspect]
     Indication: OBESITY
     Dosage: 250 MG, BID, ORAL
     Route: 048

REACTIONS (10)
  - ABDOMINAL DISCOMFORT [None]
  - ABDOMINAL PAIN LOWER [None]
  - COLITIS ISCHAEMIC [None]
  - COLONOSCOPY ABNORMAL [None]
  - DRUG INTERACTION [None]
  - HAEMATOCHEZIA [None]
  - LEUKOCYTOSIS [None]
  - NAUSEA [None]
  - PROTHROMBIN TIME PROLONGED [None]
  - VOMITING [None]
